FAERS Safety Report 8425956-1 (Version None)
Quarter: 2012Q2

REPORT INFORMATION
  Report Type: 
  Country: None (occurrence: None)
  Receive Date: 20120601
  Receipt Date: 20120525
  Transmission Date: 20120825
  Serious: Yes (Hospitalization, Other)
  Sender: FDA-Public Use
  Company Number: 2012SP025755

PATIENT
  Age: 36 Year
  Sex: Female

DRUGS (10)
  1. ZINC SULFATE [Concomitant]
  2. ZOLPIDEM [Suspect]
     Indication: DEPRESSION
     Dosage: 12.5 MG;QD;PO
     Route: 048
     Dates: start: 20111201
  3. PANTOPRAZOLE [Concomitant]
  4. BACTRIM [Concomitant]
  5. MOTILIUM [Concomitant]
  6. VALTREX [Concomitant]
  7. PURINETHOL [Concomitant]
  8. POTASSIUM CHLORIDE [Concomitant]
  9. FLUOXETINE HYDROCHLORIDE [Suspect]
     Indication: DEPRESSION
     Dosage: 20 MG;QD;PO
     Route: 048
     Dates: start: 20111101
  10. REMERON [Suspect]
     Indication: DEPRESSION
     Dosage: 30 MG;QD;PO
     Route: 048
     Dates: start: 20111101

REACTIONS (10)
  - SUICIDE ATTEMPT [None]
  - PORIOMANIA [None]
  - INTENTIONAL OVERDOSE [None]
  - INFECTION [None]
  - HYPOTHERMIA [None]
  - LEUKAEMIA [None]
  - LEUKOPENIA [None]
  - DISSOCIATIVE FUGUE [None]
  - CONFUSIONAL STATE [None]
  - AGRANULOCYTOSIS [None]
